FAERS Safety Report 4940052-3 (Version None)
Quarter: 2006Q1

REPORT INFORMATION
  Report Type: 
  Country: None (occurrence: None)
  Receive Date: 20060310
  Receipt Date: 20060104
  Transmission Date: 20060701
  Serious: Yes (Other)
  Sender: FDA-Public Use
  Company Number: US-ROCHE-430751

PATIENT
  Age: 76 Year
  Sex: Female

DRUGS (6)
  1. PEGASYS [Suspect]
     Dosage: ROUTE REPORTED AS ^INJECTION^.
     Route: 050
     Dates: start: 20050609, end: 20050901
  2. PEGASYS [Suspect]
     Dosage: ROUTE REPORTED AS ^INJECTION^.
     Route: 050
     Dates: start: 20050906, end: 20051108
  3. PEGASYS [Suspect]
     Dosage: ROUTE REPORTED AS ^INJECTION^.
     Route: 050
     Dates: start: 20051108, end: 20051123
  4. PEGASYS [Suspect]
     Route: 050
     Dates: start: 20051208, end: 20051223
  5. COPEGUS [Suspect]
     Dosage: SUSPENDED FOR 2 WEEKS.
     Route: 048
     Dates: start: 20050708
  6. COPEGUS [Suspect]
     Route: 048
     Dates: start: 20051215

REACTIONS (10)
  - ANOREXIA [None]
  - DRUG INTOLERANCE [None]
  - EPISTAXIS [None]
  - FATIGUE [None]
  - MALAISE [None]
  - NAUSEA [None]
  - POSTNASAL DRIP [None]
  - RHEUMATOID FACTOR INCREASED [None]
  - STOMACH DISCOMFORT [None]
  - WEIGHT DECREASED [None]
